FAERS Safety Report 6096360-9 (Version None)
Quarter: 2009Q1

REPORT INFORMATION
  Report Type: 
  Country: None (occurrence: None)
  Receive Date: 20090227
  Receipt Date: 20081120
  Transmission Date: 20090719
  Serious: No
  Sender: FDA-Public Use
  Company Number: A0757461A

PATIENT
  Age: 64 Year
  Sex: Male

DRUGS (4)
  1. LAMICTAL [Suspect]
     Dosage: 300MG PER DAY
     Route: 048
     Dates: start: 20070501, end: 20081119
  2. LIPITOR [Concomitant]
  3. NORVASC [Concomitant]
  4. NEXIUM [Concomitant]

REACTIONS (1)
  - RASH [None]
